FAERS Safety Report 18956168 (Version 1)
Quarter: 2021Q1

REPORT INFORMATION
  Report Type: Spontaneous
  Country: US (occurrence: US)
  Receive Date: 20210302
  Receipt Date: 20210302
  Transmission Date: 20210420
  Serious: No
  Sender: FDA-Public Use
  Company Number: US-BAUSCH-BL-2021-003217

PATIENT
  Age: 61 Year
  Sex: Male

DRUGS (1)
  1. FLUOROURACIL CREAM 5% [Suspect]
     Active Substance: FLUOROURACIL
     Indication: PRECANCEROUS CONDITION
     Route: 061
     Dates: start: 20210114

REACTIONS (2)
  - Application site erythema [Not Recovered/Not Resolved]
  - Scab [Recovering/Resolving]

NARRATIVE: CASE EVENT DATE: 202101
